FAERS Safety Report 8032161-X (Version None)
Quarter: 2012Q1

REPORT INFORMATION
  Report Type: 
  Country: None (occurrence: None)
  Receive Date: 20120109
  Receipt Date: 20111101
  Transmission Date: 20120608
  Serious: Yes (Hospitalization)
  Sender: FDA-Public Use
  Company Number: PHHO2011BR17952

PATIENT
  Sex: Female
  Weight: 30.3 kg

DRUGS (5)
  1. PREDNISONE TAB [Concomitant]
     Dosage: UNK
     Dates: start: 20101111, end: 20110303
  2. ILARIS [Suspect]
     Indication: JUVENILE ARTHRITIS
     Dosage: CODE NOT BROKEN
     Dates: end: 20111004
  3. FOLIC ACID [Concomitant]
     Dosage: UNK
     Dates: start: 20080528
  4. METHOTREXATE [Concomitant]
     Dosage: UNK
     Dates: start: 20080528, end: 20111016
  5. NAPROXEN [Concomitant]
     Dosage: UNK
     Dates: start: 20060707

REACTIONS (1)
  - VARICELLA [None]
